FAERS Safety Report 16958203 (Version 2)
Quarter: 2019Q4

REPORT INFORMATION
  Report Type: Spontaneous
  Country: FR (occurrence: FR)
  Receive Date: 20191024
  Receipt Date: 20191031
  Transmission Date: 20200122
  Serious: Yes (Hospitalization, Other)
  Sender: FDA-Public Use
  Company Number: FR-PFIZER INC-2019459739

PATIENT
  Age: 61 Year
  Sex: Male
  Weight: 62 kg

DRUGS (4)
  1. NICARDIPINE [Suspect]
     Active Substance: NICARDIPINE
     Dosage: 50 MILLIGRAM, BID
     Route: 048
  2. VALACICLOVIR [Suspect]
     Active Substance: VALACYCLOVIR HYDROCHLORIDE
     Dosage: 500 MG, BID
     Route: 048
  3. PANTOPRAZOLE [Suspect]
     Active Substance: PANTOPRAZOLE
     Dosage: 20 MG, QD
     Route: 048
  4. VYXEOS [Suspect]
     Active Substance: CYTARABINE\DAUNORUBICIN
     Indication: ACUTE MYELOID LEUKAEMIA
     Dosage: UNK
     Route: 042
     Dates: start: 20190319, end: 20190323

REACTIONS (16)
  - Conjunctival haemorrhage [Recovered/Resolved]
  - Oral disorder [Recovered/Resolved]
  - Back pain [Recovered/Resolved]
  - Drug eruption [Recovered/Resolved]
  - Pyrexia [Recovered/Resolved]
  - Haemorrhoids [Recovered/Resolved]
  - Cough [Recovered/Resolved]
  - Rectal haemorrhage [Recovered/Resolved]
  - Swelling face [Recovered/Resolved]
  - Oral pain [Recovered/Resolved]
  - Drug eruption [Recovered/Resolved]
  - Constipation [Recovered/Resolved]
  - Sinusitis [Recovered/Resolved]
  - Rectal haemorrhage [Recovered/Resolved]
  - Bacterial infection [Recovered/Resolved]
  - Petechiae [Recovered/Resolved]

NARRATIVE: CASE EVENT DATE: 20190320
